FAERS Safety Report 7394111-9 (Version None)
Quarter: 2011Q2

REPORT INFORMATION
  Report Type: 
  Country: None (occurrence: None)
  Receive Date: 20110405
  Receipt Date: 20110309
  Transmission Date: 20111010
  Serious: No
  Sender: FDA-Public Use
  Company Number: US-B.I. PHARMACEUTICALS,INC./RIDGEFIELD-2011-BP-07505BP

PATIENT
  Age: 72 Year
  Sex: Male

DRUGS (9)
  1. AMLODIPINE BESYLATE [Concomitant]
     Dosage: 5 MG
  2. ASPIRIN [Concomitant]
     Dosage: 81 MG
  3. LISINOPRIL [Concomitant]
     Dosage: 40 MG
  4. CARVEDILOL [Concomitant]
     Dosage: 25 MG
  5. NIASPAN [Concomitant]
     Dosage: 500 MG
  6. PRAVASTATIN [Concomitant]
     Dosage: 40 MG
  7. LENOXIN [Concomitant]
     Dosage: 0.125 MG
  8. PRADAXA [Suspect]
     Indication: ATRIAL FIBRILLATION
     Dosage: 300 MG
     Route: 048
     Dates: start: 20110201
  9. SPIRIVA [Suspect]
     Indication: PNEUMONIA
     Dosage: 18 MCG
     Route: 055
     Dates: start: 20110201

REACTIONS (1)
  - THROAT IRRITATION [None]
